FAERS Safety Report 23744632 (Version 3)
Quarter: 2024Q2

REPORT INFORMATION
  Report Type: Report from Study
  Country: US (occurrence: US)
  Receive Date: 20240415
  Receipt Date: 20240517
  Transmission Date: 20240716
  Serious: Yes (Life-Threatening, Hospitalization)
  Sender: FDA-Public Use
  Company Number: US-MYLANLABS-2024M1033630

PATIENT
  Age: 0 Year
  Sex: Female
  Weight: 1.75 kg

DRUGS (13)
  1. SILDENAFIL [Suspect]
     Active Substance: SILDENAFIL
     Indication: Bronchopulmonary dysplasia
     Dosage: 0.878 MILLIGRAM, BID (2 IN 1 DAYS)
     Dates: start: 20240402, end: 20240403
  2. SILDENAFIL [Suspect]
     Active Substance: SILDENAFIL
     Dosage: 1.755 MILLIGRAM, BID (2 IN 1 DAYS)
     Route: 065
     Dates: start: 20240404, end: 20240406
  3. SILDENAFIL [Suspect]
     Active Substance: SILDENAFIL
     Dosage: 2.632 MILLIGRAM, BID (2 IN 1 DAYS)
     Dates: start: 20240406, end: 20240408
  4. SILDENAFIL [Suspect]
     Active Substance: SILDENAFIL
     Dosage: 3.58 MILLIGRAM, BID (2 IN 1 DAYS)
     Dates: start: 20240408, end: 20240410
  5. SILDENAFIL [Suspect]
     Active Substance: SILDENAFIL
     Dosage: 4.475 MILLIGRAM, TID
     Dates: start: 20240410
  6. CAFFEINE CITRATE [Concomitant]
     Active Substance: CAFFEINE CITRATE
     Dosage: UNK
     Dates: start: 20240126
  7. CAFFEINE CITRATE [Concomitant]
     Active Substance: CAFFEINE CITRATE
     Dosage: UNK UNK, QD (1 IN 1 DAY)
     Route: 065
     Dates: start: 202401
  8. ZINC SULFATE [Concomitant]
     Active Substance: ZINC SULFATE
     Dosage: UNK UNK, BID (2 IN 1 DAY)
     Dates: start: 20240409
  9. FERROUS SULFATE [Concomitant]
     Active Substance: FERROUS SULFATE
     Dosage: UNK UNK, BID (2 IN 1 DAY)
     Dates: start: 20240209
  10. PHENYLEPHRINE [Concomitant]
     Active Substance: PHENYLEPHRINE HYDROCHLORIDE
     Indication: Ophthalmological examination
     Dosage: UNK
     Route: 065
     Dates: start: 20240314
  11. CYCLOPENTOLATE [Concomitant]
     Active Substance: CYCLOPENTOLATE
     Indication: Ophthalmological examination
     Dosage: UNK
     Route: 065
     Dates: start: 20240314
  12. PROPARACAINE HYDROCHLORIDE [Concomitant]
     Active Substance: PROPARACAINE HYDROCHLORIDE
     Indication: Ophthalmological examination
     Dosage: UNK
     Route: 065
     Dates: start: 20240314
  13. CHOLECALCIFEROL [Concomitant]
     Active Substance: CHOLECALCIFEROL
     Dosage: UNK UNK, BID (2 IN 1 DAY)
     Dates: start: 20240409

REACTIONS (2)
  - Respiratory failure [Recovered/Resolved]
  - Sepsis [Recovered/Resolved]

NARRATIVE: CASE EVENT DATE: 20240410
